FAERS Safety Report 18200973 (Version 1)
Quarter: 2020Q3

REPORT INFORMATION
  Report Type: Other
  Country: FR (occurrence: FR)
  Receive Date: 20200827
  Receipt Date: 20200827
  Transmission Date: 20201103
  Serious: Yes (Death)
  Sender: FDA-Public Use
  Company Number: FR-CADILA HEALTHCARE LIMITED-FR-ZYDUS-036052

PATIENT

DRUGS (9)
  1. ATORVASTATIN [Suspect]
     Active Substance: ATORVASTATIN
     Indication: MYOCARDIAL ISCHAEMIA
     Dosage: 2 DOSAGE FORM,(INTERVAL :1 DAYS)
     Route: 048
     Dates: start: 201901
  2. APIXABAN [Suspect]
     Active Substance: APIXABAN
     Indication: MYOCARDIAL ISCHAEMIA
     Dosage: 2 DOSAGE FORM,5 MG FILM?COATED TABLETS,(INTERVAL :1 DAYS)
     Route: 048
     Dates: start: 201901
  3. BISOPROLOL (HEMIFUMARATE DE) [Suspect]
     Active Substance: BISOPROLOL FUMARATE
     Indication: HYPERTENSION
     Dosage: 3 DOSAGE FORM,2.5 MG, SCORED FILM?COATED TABLET,(INTERVAL :1 DAYS)
     Route: 048
     Dates: start: 201901
  4. ZAMUDOL [Suspect]
     Active Substance: TRAMADOL HYDROCHLORIDE
     Indication: PAIN
     Dosage: 2 DOSAGE FORM,(INTERVAL :1 DAYS)
     Route: 048
     Dates: start: 201901
  5. CIPROFLOXACINE [Suspect]
     Active Substance: CIPROFLOXACIN
     Indication: INFECTION
     Dosage: 2 / J THEN 0.5CP 2 / D
     Route: 048
     Dates: start: 20190322, end: 20190329
  6. PANTOPRAZOLE [Suspect]
     Active Substance: PANTOPRAZOLE
     Indication: ULCER HAEMORRHAGE
     Dosage: 1 DOSAGE FORM,(INTERVAL :1 DAYS)
     Route: 048
     Dates: start: 201901
  7. KARDEGIC [Suspect]
     Active Substance: ASPIRIN DL-LYSINE
     Indication: MYOCARDIAL ISCHAEMIA
     Dosage: 1 DOSAGE FORM,75 MG POWDER FOR ORAL SOLUTION IN A SACHET,(INTERVAL :1 DAYS)
     Route: 048
     Dates: start: 201901
  8. CORDARONE [Suspect]
     Active Substance: AMIODARONE HYDROCHLORIDE
     Indication: MYOCARDIAL ISCHAEMIA
     Dosage: 1 DOSAGE FORM,200 MG, SCORED TABLET,(INTERVAL :1 DAYS)
     Route: 048
     Dates: start: 201901
  9. DOLIPRANE [Suspect]
     Active Substance: ACETAMINOPHEN
     Indication: PAIN
     Dosage: 6 DOSAGE FORM,(INTERVAL :1 DAYS)
     Route: 048
     Dates: start: 201901

REACTIONS (6)
  - Failure to suspend medication [Unknown]
  - Shock haemorrhagic [Fatal]
  - Rectal haemorrhage [Fatal]
  - Gastric ulcer perforation [Fatal]
  - Gastric haemorrhage [Fatal]
  - Product use in unapproved indication [Unknown]

NARRATIVE: CASE EVENT DATE: 201902
